FAERS Safety Report 5806623-7 (Version None)
Quarter: 2008Q3

REPORT INFORMATION
  Report Type: 
  Country: None (occurrence: None)
  Receive Date: 20080710
  Receipt Date: 20080701
  Transmission Date: 20090109
  Serious: Yes (Other)
  Sender: FDA-Public Use
  Company Number: PHHY2008DE12710

PATIENT
  Sex: Female

DRUGS (2)
  1. LEPONEX [Suspect]
     Indication: MAJOR DEPRESSION
     Dosage: 75 MG DAILY
     Route: 048
     Dates: start: 20060101
  2. CITALOPRAM HYDROBROMIDE [Concomitant]
     Indication: MAJOR DEPRESSION
     Dosage: 60 MG DAILY
     Route: 048

REACTIONS (1)
  - OBSESSIVE-COMPULSIVE DISORDER [None]
